FAERS Safety Report 21295393 (Version 1)
Quarter: 2022Q3

REPORT INFORMATION
  Report Type: Other
  Country: US (occurrence: None)
  Receive Date: 20220905
  Receipt Date: 20220905
  Transmission Date: 20221027
  Serious: No
  Sender: FDA-Public Use
  Company Number: US-ROCHE-3171757

PATIENT
  Age: 35 Year
  Sex: Male
  Weight: 67.646 kg

DRUGS (6)
  1. OCREVUS [Suspect]
     Active Substance: OCRELIZUMAB
     Indication: Primary progressive multiple sclerosis
     Dosage: NO
     Route: 042
     Dates: start: 20220616, end: 20220706
  2. OCREVUS [Suspect]
     Active Substance: OCRELIZUMAB
     Dosage: YES
     Route: 042
  3. BACLOFEN [Concomitant]
     Active Substance: BACLOFEN
  4. LORAZEPAM [Concomitant]
     Active Substance: LORAZEPAM
  5. ZOLPIDEM [Concomitant]
     Active Substance: ZOLPIDEM TARTRATE
  6. TADALAFIL [Concomitant]
     Active Substance: TADALAFIL

REACTIONS (3)
  - Fall [Unknown]
  - COVID-19 [Recovered/Resolved]
  - Head injury [Unknown]

NARRATIVE: CASE EVENT DATE: 20220722
